FAERS Safety Report 13230606 (Version 3)
Quarter: 2018Q1

REPORT INFORMATION
  Report Type: Spontaneous
  Country: US (occurrence: US)
  Receive Date: 20170214
  Receipt Date: 20180129
  Transmission Date: 20180508
  Serious: No
  Sender: FDA-Public Use
  Company Number: US-PFIZER INC-2017056990

PATIENT
  Age: 71 Year
  Sex: Female

DRUGS (2)
  1. ATORVASTATIN CALCIUM. [Suspect]
     Active Substance: ATORVASTATIN CALCIUM
     Indication: STENT PLACEMENT
     Dosage: UNK
  2. LEVOTHYROXINE. [Concomitant]
     Active Substance: LEVOTHYROXINE
     Dosage: 81 UG, 1X/DAY

REACTIONS (4)
  - Fatigue [Recovered/Resolved]
  - Mobility decreased [Recovered/Resolved]
  - Somnolence [Recovered/Resolved]
  - Arthralgia [Recovered/Resolved]
